FAERS Safety Report 8611633-0 (Version None)
Quarter: 2012Q3

REPORT INFORMATION
  Report Type: 
  Country: None (occurrence: None)
  Receive Date: 20120822
  Receipt Date: 20120813
  Transmission Date: 20120928
  Serious: Yes (Hospitalization)
  Sender: FDA-Public Use
  Company Number: BR-ASTRAZENECA-2012SE57319

PATIENT
  Age: 72 Year
  Sex: Female
  Weight: 66 kg

DRUGS (5)
  1. ATENOLOL [Suspect]
     Indication: HYPERTENSION
     Route: 048
     Dates: start: 20120301
  2. SYNTHROID [Concomitant]
     Indication: HYPOTHYROIDISM
     Dosage: 88 MCG
     Route: 048
  3. CRESTOR [Suspect]
     Indication: BLOOD CHOLESTEROL INCREASED
     Route: 048
     Dates: end: 20120301
  4. BENICAR [Suspect]
     Indication: HYPERTENSION
     Dosage: 10/12,5 MG DAILY
     Route: 048
     Dates: end: 20120301
  5. DIGEPLUS [Concomitant]
     Indication: REFLUX GASTRITIS
     Route: 048

REACTIONS (4)
  - DRUG INEFFECTIVE [None]
  - ANGINA PECTORIS [None]
  - OFF LABEL USE [None]
  - BLOOD CHOLESTEROL INCREASED [None]
